FAERS Safety Report 24584371 (Version 1)
Quarter: 2024Q4

REPORT INFORMATION
  Report Type: Spontaneous
  Country: US (occurrence: None)
  Receive Date: 20241105
  Receipt Date: 20241105
  Transmission Date: 20250115
  Serious: Yes (unspecified)
  Sender: Public
  Company Number: None

PATIENT
  Age: 67 Year
  Sex: Female
  Weight: 83.25 kg

DRUGS (11)
  1. RITUXIMAB [Suspect]
     Active Substance: RITUXIMAB
     Indication: Cryoglobulinaemia
     Dosage: OTHER QUANTITY : 1 INJECTION(S);?OTHER FREQUENCY : EVERY SIX MONTHS;?
     Route: 030
     Dates: start: 20230430, end: 20240930
  2. PERCOCET [Concomitant]
     Active Substance: ACETAMINOPHEN\OXYCODONE HYDROCHLORIDE
  3. GABAPENTIN [Concomitant]
  4. METOPROLOL [Concomitant]
     Active Substance: METOPROLOL
  5. Vital c, [Concomitant]
  6. VITAL D [Concomitant]
  7. B12 [Concomitant]
  8. COENZYME Q10 [Concomitant]
     Active Substance: DIETARY SUPPLEMENT\UBIDECARENONE
  9. KRILL OIL [Concomitant]
  10. multivitamin [Concomitant]
  11. MAGNESIUM [Concomitant]

REACTIONS (3)
  - Tooth fracture [None]
  - Infusion related reaction [None]
  - Economic problem [None]

NARRATIVE: CASE EVENT DATE: 20240401
